FAERS Safety Report 6357347-1 (Version None)
Quarter: 2009Q3

REPORT INFORMATION
  Report Type: 
  Country: None (occurrence: None)
  Receive Date: 20090916
  Receipt Date: 20090909
  Transmission Date: 20100115
  Serious: Yes (Hospitalization)
  Sender: FDA-Public Use
  Company Number: US-BIOGENIDEC-2009BI024329

PATIENT
  Age: 71 Year
  Sex: Female

DRUGS (17)
  1. TYSABRI [Suspect]
     Indication: MULTIPLE SCLEROSIS
     Route: 042
     Dates: start: 20070104
  2. TOPROL-XL [Concomitant]
     Route: 048
  3. OS-CAL [Concomitant]
     Route: 048
  4. WELCHOL [Concomitant]
     Route: 048
  5. BUMEX [Concomitant]
     Route: 048
  6. POTASSIUM CHLORIDE [Concomitant]
     Route: 048
  7. BACLOFEN [Concomitant]
     Route: 048
  8. PROTONIX [Concomitant]
     Route: 048
  9. NEURONTIN [Concomitant]
  10. DIOVAN [Concomitant]
     Route: 048
  11. ACTONEL [Concomitant]
     Route: 048
  12. DETROL LA [Concomitant]
     Route: 048
  13. MONOPRIL [Concomitant]
     Route: 048
  14. NORVASC [Concomitant]
     Route: 048
  15. IMDUR [Concomitant]
     Route: 048
  16. NOVOLIN 70/30 [Concomitant]
  17. NOVOLIN 70/30 [Concomitant]

REACTIONS (3)
  - DEEP VEIN THROMBOSIS [None]
  - GOUT [None]
  - HAEMORRHAGIC STROKE [None]
